FAERS Safety Report 14805282 (Version 3)
Quarter: 2019Q3

REPORT INFORMATION
  Report Type: Spontaneous
  Country: AU (occurrence: AU)
  Receive Date: 20180425
  Receipt Date: 20190907
  Transmission Date: 20191004
  Serious: Yes (Other)
  Sender: FDA-Public Use
  Company Number: AU-CELLTRION INC.-2018AU019342

PATIENT

DRUGS (2)
  1. INFLIXIMAB PFIZER (UNKNOWN) [Suspect]
     Active Substance: INFLIXIMAB
     Indication: NEUROSARCOIDOSIS
     Dosage: UNK
     Dates: start: 2014, end: 2016
  2. PREDNISOLONE. [Concomitant]
     Active Substance: PREDNISOLONE
     Indication: NEUROSARCOIDOSIS
     Dosage: HIGH DOSE

REACTIONS (7)
  - Neurosarcoidosis [Unknown]
  - Disease progression [Unknown]
  - Lymphoma [Unknown]
  - Blindness [Unknown]
  - Optic neuritis [Unknown]
  - Product use in unapproved indication [Unknown]
  - Off label use [Unknown]

NARRATIVE: CASE EVENT DATE: 2014
